FAERS Safety Report 5002692-5 (Version None)
Quarter: 2006Q2

REPORT INFORMATION
  Report Type: 
  Country: None (occurrence: None)
  Receive Date: 20060510
  Receipt Date: 20060501
  Transmission Date: 20061013
  Serious: Yes (Hospitalization, Other)
  Sender: FDA-Public Use
  Company Number: 2006050410

PATIENT
  Age: 58 Year
  Sex: Male
  Weight: 80 kg

DRUGS (4)
  1. NORVASC [Suspect]
     Indication: HYPERTENSION
     Dosage: 5 MG (5 MG, QD), ORAL
     Route: 048
     Dates: start: 20010101, end: 20060405
  2. BLOPRESS (CANDESARTAN CILEXETIL) [Suspect]
     Indication: HYPERTENSION
     Dosage: 8 MG (8 MG, QD), ORAL
     Route: 048
     Dates: start: 20010101, end: 20060405
  3. ALLOPURINOL [Suspect]
     Indication: GOUT
     Dosage: 100 MG (100 MG, QD), ORAL
     Route: 048
     Dates: start: 20051201, end: 20060405
  4. ACETAMINOPHEN [Suspect]
     Indication: PYREXIA
     Dosage: 2 CAPSULES QD, ORAL
     Route: 048
     Dates: start: 20060403, end: 20060404

REACTIONS (5)
  - LIVER FUNCTION TEST ABNORMAL [None]
  - LOSS OF CONSCIOUSNESS [None]
  - MULTI-ORGAN DISORDER [None]
  - RENAL IMPAIRMENT [None]
  - STEVENS-JOHNSON SYNDROME [None]
